FAERS Safety Report 13646318 (Version 1)
Quarter: 2017Q2

REPORT INFORMATION
  Report Type: Spontaneous
  Country: US (occurrence: US)
  Receive Date: 20170612
  Receipt Date: 20170612
  Transmission Date: 20170830
  Serious: No
  Sender: FDA-Public Use
  Company Number: None

PATIENT
  Sex: Female

DRUGS (1)
  1. ORENCIA [Suspect]
     Active Substance: ABATACEPT
     Dosage: ?          OTHER FREQUENCY:WEEKLY;?125 MG SUBCUTANEOUS
     Route: 058

REACTIONS (6)
  - Fatigue [None]
  - Mood swings [None]
  - Headache [None]
  - Drug ineffective [None]
  - Bone pain [None]
  - Nausea [None]
